FAERS Safety Report 10668196 (Version 1)
Quarter: 2014Q4

REPORT INFORMATION
  Report Type: Spontaneous
  Country: US (occurrence: None)
  Receive Date: 20141219
  Receipt Date: 20141219
  Transmission Date: 20150529
  Serious: No
  Sender: FDA-Public Use
  Company Number: None

PATIENT
  Sex: Female
  Weight: 65.32 kg

DRUGS (1)
  1. MONTUKLAST [Suspect]
     Active Substance: MONTELUKAST SODIUM
     Indication: NO THERAPEUTIC RESPONSE
     Dosage: 10MG, DAILY, PC

REACTIONS (3)
  - Asthma [None]
  - Product substitution issue [None]
  - Therapeutic response changed [None]
